FAERS Safety Report 7531668-9 (Version None)
Quarter: 2011Q2

REPORT INFORMATION
  Report Type: 
  Country: None (occurrence: None)
  Receive Date: 20110601
  Receipt Date: 20110524
  Transmission Date: 20111010
  Serious: Yes (Death)
  Sender: FDA-Public Use
  Company Number: 2005JP000047

PATIENT
  Sex: Female

DRUGS (8)
  1. PROGRAF [Suspect]
     Indication: SMALL INTESTINE TRANSPLANT
     Dosage: 0.025; 0.06; 0.043; 0.087 MG/KG
  2. PROGRAF [Suspect]
     Indication: SMALL INTESTINE TRANSPLANT
     Dosage: ORAL
     Route: 048
  3. PROGRAF [Suspect]
     Indication: SMALL INTESTINE TRANSPLANT
     Dosage: ORAL
     Route: 048
  4. ZENAPAX [Concomitant]
  5. CYCLOPHOSPHAMIDE (CICLOPHOSPHAMIDE) [Concomitant]
  6. STEROID [Concomitant]
  7. AZATHIPRINE (AZATHIOPRINE) [Concomitant]
  8. MYCOPHENOLATE MOFETIL [Concomitant]

REACTIONS (1)
  - ESCHERICHIA SEPSIS [None]
